FAERS Safety Report 17219619 (Version 2)
Quarter: 2025Q4

REPORT INFORMATION
  Report Type: Spontaneous
  Country: US (occurrence: US)
  Receive Date: 20191231
  Receipt Date: 20251121
  Transmission Date: 20260117
  Serious: Yes (Other)
  Sender: NOVO NORDISK
  Company Number: US-NOVOPROD-704382

PATIENT
  Age: 71 Year
  Sex: Female

DRUGS (1)
  1. NOVOLIN 70/30 [Suspect]
     Active Substance: INSULIN HUMAN
     Indication: Diabetes mellitus
     Dosage: 31 IU, QD (15UNITS IN THE MORNING AND 16 UNITS IN THE EVENING)
     Route: 058
     Dates: start: 2017

REACTIONS (3)
  - Myocardial infarction [Unknown]
  - Dialysis [Unknown]
  - Back disorder [Unknown]

NARRATIVE: CASE EVENT DATE: 20191101
